FAERS Safety Report 16457481 (Version 2)
Quarter: 2020Q1

REPORT INFORMATION
  Report Type: Spontaneous
  Country: CN (occurrence: CN)
  Receive Date: 20190620
  Receipt Date: 20200224
  Transmission Date: 20200409
  Serious: Yes (Death, Other)
  Sender: FDA-Public Use
  Company Number: CN-PFIZER INC-2019259939

PATIENT
  Age: 53 Year
  Sex: Female

DRUGS (7)
  1. VINBLASTINE SULFATE. [Suspect]
     Active Substance: VINBLASTINE SULFATE
     Indication: SARCOMA
     Dosage: 6 MG/M2, ON DAY 1
  2. BLEOMYCIN [Suspect]
     Active Substance: BLEOMYCIN SULFATE
     Indication: SARCOMA
     Dosage: 10 MG/M2, ON DAY 1
  3. OXALIPLATIN. [Suspect]
     Active Substance: OXALIPLATIN
     Indication: SARCOMA
     Dosage: 85 MG/M2, ON DAY 2
  4. DOXORUBICIN [Suspect]
     Active Substance: DOXORUBICIN
     Dosage: 25 MG/M2, ON DAY 1
  5. IFOSFAMIDE. [Suspect]
     Active Substance: IFOSFAMIDE
     Indication: SARCOMA
     Dosage: 1.2 MG/M2, ON DAYS 2 TO 4, ONE CYCLE
  6. DACARBAZINE. [Suspect]
     Active Substance: DACARBAZINE
     Indication: SARCOMA
     Dosage: 375 MG/M2, ON DAY 1
  7. IMIPENEM [Concomitant]
     Active Substance: IMIPENEM
     Indication: BACTERIAL INFECTION

REACTIONS (1)
  - Hepatic failure [Fatal]
